FAERS Safety Report 25325377 (Version 1)
Quarter: 2025Q2

REPORT INFORMATION
  Report Type: Spontaneous
  Country: TW (occurrence: TW)
  Receive Date: 20250516
  Receipt Date: 20250516
  Transmission Date: 20250717
  Serious: Yes (Hospitalization)
  Sender: NOVARTIS
  Company Number: TW-002147023-NVSC2025TW076479

PATIENT
  Age: 47 Year
  Sex: Male
  Weight: 82.9 kg

DRUGS (12)
  1. EXFORGE HCT [Suspect]
     Active Substance: AMLODIPINE BESYLATE\HYDROCHLOROTHIAZIDE\VALSARTAN
     Indication: Product used for unknown indication
     Dosage: UNK, QD (12.5MG/160MG/6.94MG)
     Route: 048
     Dates: start: 20150430
  2. OZEMPIC [Suspect]
     Active Substance: SEMAGLUTIDE
     Indication: Product used for unknown indication
     Dosage: 1.34 MG, QW
     Route: 058
     Dates: start: 20231207, end: 20240425
  3. ASPIRIN [Concomitant]
     Active Substance: ASPIRIN
     Indication: Product used for unknown indication
     Dosage: 100.0 MG, QD (ENTERIC MICROENCAPSULATED CAPSULES)
     Route: 048
     Dates: start: 20120830
  4. Euricon [Concomitant]
     Indication: Product used for unknown indication
     Dosage: 50.0 MG, QD
     Route: 048
     Dates: start: 20140109
  5. EZETIMIBE [Concomitant]
     Active Substance: EZETIMIBE
     Indication: Product used for unknown indication
     Dosage: 10.0 MG, QD
     Route: 048
     Dates: start: 20141113
  6. BISOPROLOL FUMARATE [Concomitant]
     Active Substance: BISOPROLOL FUMARATE
     Indication: Product used for unknown indication
     Dosage: 5.0 MG, QD
     Route: 048
     Dates: start: 20151022
  7. LIPITOR [Concomitant]
     Active Substance: ATORVASTATIN CALCIUM
     Indication: Product used for unknown indication
     Dosage: 20 MG, QD
     Route: 048
     Dates: start: 20210311
  8. FENOFIBRATE [Concomitant]
     Active Substance: FENOFIBRATE
     Indication: Product used for unknown indication
     Dosage: 145.0 MG, QD
     Route: 048
     Dates: start: 20200319
  9. AMARYL [Concomitant]
     Active Substance: GLIMEPIRIDE
     Indication: Product used for unknown indication
     Dosage: 2.0 MG, BID
     Route: 048
     Dates: start: 20230316
  10. METFORMIN HYDROCHLORIDE [Concomitant]
     Active Substance: METFORMIN HYDROCHLORIDE
     Indication: Product used for unknown indication
     Dosage: 500.0 MG, BID
     Route: 048
     Dates: start: 20170706
  11. Nolidin [Concomitant]
     Indication: Product used for unknown indication
     Dosage: 2 MG, QD (2MG/300MG/200MG)
     Route: 048
     Dates: start: 20230907
  12. LEVEMIR [Concomitant]
     Active Substance: INSULIN DETEMIR
     Indication: Product used for unknown indication
     Dosage: 14.2 MG, BID
     Route: 058
     Dates: start: 20230907

REACTIONS (3)
  - Pancreatitis acute [Recovered/Resolved]
  - Abdominal pain upper [Recovered/Resolved]
  - Pyrexia [Recovered/Resolved]

NARRATIVE: CASE EVENT DATE: 20240425
